FAERS Safety Report 5501483-6 (Version None)
Quarter: 2007Q4

REPORT INFORMATION
  Report Type: 
  Country: None (occurrence: None)
  Receive Date: 20071019
  Receipt Date: 20070810
  Transmission Date: 20080405
  Serious: Yes (Other)
  Sender: FDA-Public Use
  Company Number: HQWYE537614AUG07

PATIENT
  Age: 58 Year
  Sex: Female
  Weight: 90.8 kg

DRUGS (3)
  1. ADVIL PM [Suspect]
     Indication: INSOMNIA
     Dosage: 1-2 CAPLETS AS NEEDED, ORAL
     Route: 048
     Dates: start: 20070701, end: 20070701
  2. LEVOTHROID [Concomitant]
  3. ZESTORETIC [Concomitant]

REACTIONS (1)
  - FEELING JITTERY [None]
